FAERS Safety Report 5009982-0 (Version None)
Quarter: 2006Q2

REPORT INFORMATION
  Report Type: 
  Country: None (occurrence: None)
  Receive Date: 20060524
  Receipt Date: 20051004
  Transmission Date: 20061013
  Serious: Yes (Hospitalization)
  Sender: FDA-Public Use
  Company Number: JP-GILEAD-2005-0008776

PATIENT
  Sex: Female

DRUGS (12)
  1. HEPSERA [Suspect]
     Indication: HEPATITIS B
     Route: 048
     Dates: start: 20050323, end: 20050928
  2. ZEFFIX [Concomitant]
     Indication: HEPATIC CIRRHOSIS
     Route: 048
     Dates: start: 20020516, end: 20051116
  3. THYRADIN S [Concomitant]
     Dates: start: 20050701
  4. PYDOXAL [Concomitant]
  5. URSO [Concomitant]
  6. TAURINE [Concomitant]
  7. CYANOCOBALAMIN [Concomitant]
  8. MAGNESIUM OXIDE [Concomitant]
  9. LIPITOR [Concomitant]
  10. LASIX [Concomitant]
  11. ALDACTONE [Concomitant]
  12. TAKEPRON [Concomitant]

REACTIONS (6)
  - ABASIA [None]
  - BLOOD ALKALINE PHOSPHATASE INCREASED [None]
  - BLOOD CREATININE INCREASED [None]
  - BLOOD PHOSPHORUS DECREASED [None]
  - BLOOD POTASSIUM DECREASED [None]
  - MUSCULAR WEAKNESS [None]
